FAERS Safety Report 18589001 (Version 1)
Quarter: 2020Q4

REPORT INFORMATION
  Report Type: Report from Study
  Country: BR (occurrence: BR)
  Receive Date: 20201208
  Receipt Date: 20201208
  Transmission Date: 20210114
  Serious: Yes (Other)
  Sender: FDA-Public Use
  Company Number: BR-JNJFOC-20201202385

PATIENT
  Sex: Female
  Weight: 60 kg

DRUGS (1)
  1. BIO-MANGUINHOS INFLIXIMABE [Suspect]
     Active Substance: INFLIXIMAB
     Indication: CROHN^S DISEASE
     Route: 042

REACTIONS (3)
  - Syncope [Recovered/Resolved]
  - Angioedema [Recovered/Resolved]
  - Infusion related reaction [Unknown]
